FAERS Safety Report 5699106-9 (Version None)
Quarter: 2008Q2

REPORT INFORMATION
  Report Type: 
  Country: None (occurrence: None)
  Receive Date: 20080407
  Receipt Date: 20080407
  Transmission Date: 20081010
  Serious: Yes (Other)
  Sender: FDA-Public Use
  Company Number: None

PATIENT
  Age: 67 Year
  Sex: Male
  Weight: 63.6 kg

DRUGS (10)
  1. ZYVOX [Suspect]
     Indication: CATHETER RELATED INFECTION
     Dosage: 600 MILLIGRAMS EVERY 12 HOURS IV
     Route: 042
     Dates: start: 20070815, end: 20070827
  2. ZYVOX [Suspect]
     Indication: ENTEROCOCCAL INFECTION
     Dosage: 600 MILLIGRAMS EVERY 12 HOURS IV
     Route: 042
     Dates: start: 20070815, end: 20070827
  3. EFFEXOR [Suspect]
     Indication: DEPRESSION
     Dosage: 75 MILLIGRAMS DAILY PO
     Route: 048
     Dates: start: 20070723, end: 20070827
  4. OXYCODONE HCL [Concomitant]
  5. DOCUSATE SODIUM [Concomitant]
  6. HEPARIN [Concomitant]
  7. PANTOPRAZOLE SODIUM [Concomitant]
  8. ENALAPRIL MALEATE [Concomitant]
  9. AMLODIPINE [Concomitant]
  10. FOLIC ACID [Concomitant]

REACTIONS (5)
  - AMNESIA [None]
  - APATHY [None]
  - CATHETER RELATED INFECTION [None]
  - ENTEROCOCCAL INFECTION [None]
  - SEROTONIN SYNDROME [None]
